FAERS Safety Report 8430302-3 (Version None)
Quarter: 2012Q2

REPORT INFORMATION
  Report Type: 
  Country: None (occurrence: None)
  Receive Date: 20120612
  Receipt Date: 20120530
  Transmission Date: 20120825
  Serious: Yes (Other)
  Sender: FDA-Public Use
  Company Number: PL-CELGENEUS-129-C5013-12053546

PATIENT
  Sex: Male
  Weight: 92 kg

DRUGS (5)
  1. LENALIDOMIDE [Suspect]
     Dosage: 2.5 MILLIGRAM
     Route: 048
     Dates: start: 20100507
  2. CLOTRIMAZOL [Concomitant]
     Indication: ERYTHEMA
     Dosage: 45 MILLIGRAM
     Route: 061
     Dates: start: 20120331
  3. DICLOFENAC SODIUM [Concomitant]
     Route: 048
     Dates: start: 20120320
  4. CUTIVATE [Concomitant]
     Indication: ERYTHEMA
     Dosage: 30 GRAM
     Route: 048
     Dates: start: 20120331
  5. LENALIDOMIDE [Suspect]
     Dosage: 2.5 MILLIGRAM
     Route: 048
     Dates: start: 20120529

REACTIONS (1)
  - BASAL CELL CARCINOMA [None]
